FAERS Safety Report 9278888 (Version 1)
Quarter: 2013Q2

REPORT INFORMATION
  Report Type: Spontaneous
  Country: CH (occurrence: CH)
  Receive Date: 20130508
  Receipt Date: 20130508
  Transmission Date: 20140414
  Serious: Yes (Other)
  Sender: FDA-Public Use
  Company Number: PHHY2013CH044554

PATIENT
  Age: 61 Year
  Sex: Female
  Weight: 100 kg

DRUGS (1)
  1. RIMACTAN /00146901/ [Suspect]
     Indication: LATENT TUBERCULOSIS
     Dosage: 600 MG, QD
     Route: 048
     Dates: start: 20130208, end: 20130309

REACTIONS (4)
  - Gastric ulcer [Recovered/Resolved]
  - Gastritis [Recovered/Resolved]
  - Abdominal pain upper [Recovered/Resolved]
  - Dyspepsia [Recovered/Resolved]
